FAERS Safety Report 10062799 (Version 1)
Quarter: 2014Q2

REPORT INFORMATION
  Report Type: Report from Study
  Country: JP (occurrence: JP)
  Receive Date: 20140407
  Receipt Date: 20140407
  Transmission Date: 20141212
  Serious: Yes (Hospitalization)
  Sender: FDA-Public Use
  Company Number: JP-VERTEX PHARMACEUTICALS INC-2014-001751

PATIENT
  Age: 58 Year
  Sex: Male

DRUGS (21)
  1. VX-950 (TELAPREVIR) [Suspect]
     Indication: CHRONIC HEPATITIS C
     Dosage: 1500 MG, QD
     Route: 048
     Dates: start: 20120510, end: 20120516
  2. RIBAVIRIN [Suspect]
     Indication: CHRONIC HEPATITIS C
     Dosage: 600 MG, QD
     Route: 048
     Dates: start: 20120510, end: 20120516
  3. RIBAVIRIN [Suspect]
     Dosage: 400 MG, QD
     Route: 048
     Dates: start: 20120517, end: 20120614
  4. RIBAVIRIN [Suspect]
     Dosage: 600 MG, QD
     Route: 048
     Dates: start: 20120615, end: 20120628
  5. PEGINTERFERON ALFA-2B [Suspect]
     Indication: CHRONIC HEPATITIS C
     Dosage: 1.5 ?G/KG, QW
     Route: 058
     Dates: start: 20120510, end: 20120510
  6. PEGINTERFERON ALFA-2B [Suspect]
     Dosage: 1.0 ?G/KG, QW
     Route: 058
     Dates: start: 20120517, end: 20120517
  7. PEGINTERFERON ALFA-2B [Suspect]
     Dosage: 1.5 ?G/KG, QW
     Route: 058
     Dates: start: 20120524, end: 20120622
  8. URSO [Concomitant]
     Dosage: 600 MG, UNK
     Route: 048
  9. JANUVIA [Concomitant]
     Dosage: 50 MG, UNK
     Route: 048
  10. LASIX [Concomitant]
     Dosage: 40 MG, UNK
     Route: 048
  11. LIVACT [Concomitant]
     Dosage: 12.45 G, UNK
     Route: 048
  12. LACTULOSE [Concomitant]
     Dosage: 30 ML, UNK
     Route: 048
  13. BROTIZOLAM [Concomitant]
     Dosage: 0.25 MG, UNK
     Route: 048
  14. MYSLEE [Concomitant]
     Dosage: 10 MG, UNK
     Route: 048
  15. ALLEGRA [Concomitant]
     Dosage: 120 MG, UNK
     Route: 048
  16. ALDACTONE A [Concomitant]
     Dosage: 50 MG, UNK
     Route: 048
  17. REVOLADE [Concomitant]
     Dosage: 12.5 MG, UNK
     Route: 048
     Dates: end: 20120516
  18. REVOLADE [Concomitant]
     Dosage: 25 MG, UNK
     Route: 048
     Dates: start: 20120517
  19. HUMALOG [Concomitant]
     Dosage: 26 DF, UNK
     Route: 058
  20. LANTUS [Concomitant]
     Dosage: 22 DF, UNK
     Route: 058
  21. PARIET [Concomitant]
     Dosage: 10 MG, UNK
     Route: 048
     Dates: start: 20120512

REACTIONS (1)
  - Abdominal pain [Recovered/Resolved]
